FAERS Safety Report 10073592 (Version 1)
Quarter: 2014Q2

REPORT INFORMATION
  Report Type: Report from Study
  Country: US (occurrence: US)
  Receive Date: 20140411
  Receipt Date: 20140411
  Transmission Date: 20141212
  Serious: Yes (Other)
  Sender: FDA-Public Use
  Company Number: US-ABBVIE-14P-163-1221501-00

PATIENT
  Sex: Female
  Weight: 74.91 kg

DRUGS (2)
  1. HUMIRA [Suspect]
     Indication: PSORIASIS
     Route: 058
     Dates: start: 2010
  2. KARIVA [Concomitant]
     Indication: CONTRACEPTION
     Route: 048

REACTIONS (4)
  - Pain [Recovered/Resolved]
  - Unevaluable event [Unknown]
  - Psoriasis [Not Recovered/Not Resolved]
  - Cyst [Recovered/Resolved]
